FAERS Safety Report 10196951 (Version 2)
Quarter: 2014Q3

REPORT INFORMATION
  Report Type: Spontaneous
  Country: RU (occurrence: RU)
  Receive Date: 20140527
  Receipt Date: 20140703
  Transmission Date: 20150326
  Serious: Yes (Other)
  Sender: FDA-Public Use
  Company Number: RU-JNJFOC-20140510245

PATIENT
  Sex: Male

DRUGS (2)
  1. STELARA [Suspect]
     Active Substance: USTEKINUMAB
     Indication: UNEVALUABLE EVENT
     Route: 058
     Dates: start: 20130531
  2. STELARA [Suspect]
     Active Substance: USTEKINUMAB
     Indication: UNEVALUABLE EVENT
     Route: 058
     Dates: start: 20110504, end: 20120208

REACTIONS (1)
  - Benign prostatic hyperplasia [Unknown]
